FAERS Safety Report 8049851-5 (Version None)
Quarter: 2012Q1

REPORT INFORMATION
  Report Type: 
  Country: None (occurrence: None)
  Receive Date: 20120111
  Receipt Date: 20110622
  Transmission Date: 20120608
  Serious: No
  Sender: FDA-Public Use
  Company Number: 2011-03727

PATIENT
  Age: 8 Year
  Sex: Female

DRUGS (1)
  1. TUBERSOL [Suspect]
     Indication: TUBERCULIN TEST
     Dates: start: 20110602, end: 20110602

REACTIONS (5)
  - PYREXIA [None]
  - SYNCOPE [None]
  - NAUSEA [None]
  - VOMITING [None]
  - VIRAL INFECTION [None]
